FAERS Safety Report 21719878 (Version 1)
Quarter: 2022Q4

REPORT INFORMATION
  Report Type: Other
  Country: US (occurrence: US)
  Receive Date: 20221213
  Receipt Date: 20221213
  Transmission Date: 20230112
  Serious: Yes (Death, Other)
  Sender: FDA-Public Use
  Company Number: US-HLS-202105352

PATIENT
  Age: 62 Year
  Sex: Male

DRUGS (5)
  1. CLOZAPINE [Suspect]
     Active Substance: CLOZAPINE
     Indication: Schizophrenia
     Route: 065
  2. CLOZAPINE [Suspect]
     Active Substance: CLOZAPINE
     Indication: Schizophrenia
     Dosage: STARTED AT 12.5 MG DAILY AND TITRATED TO 75 MG DAILY OVER 3 WEEK
     Route: 065
  3. ALPRAZOLAM [Concomitant]
     Active Substance: ALPRAZOLAM
     Indication: Anxiety
     Route: 065
  4. FLUPHENAZINE [Concomitant]
     Active Substance: FLUPHENAZINE
     Route: 048
  5. fluphenazine deconate [Concomitant]
     Route: 030

REACTIONS (17)
  - Abdominal pain [Fatal]
  - Acute respiratory failure [Fatal]
  - Cardiac failure congestive [Fatal]
  - Constipation [Fatal]
  - Dyspnoea [Fatal]
  - Pyrexia [Fatal]
  - Discomfort [Fatal]
  - Metabolic acidosis [Fatal]
  - Nasal congestion [Fatal]
  - Cough [Fatal]
  - Blood pressure orthostatic [Fatal]
  - Pulmonary embolism [Fatal]
  - Chest pain [Fatal]
  - Salivary hypersecretion [Fatal]
  - Tachycardia [Fatal]
  - Tachypnoea [Fatal]
  - Respiratory disorder [Fatal]
